FAERS Safety Report 22191685 (Version 1)
Quarter: 2023Q2

REPORT INFORMATION
  Report Type: Spontaneous
  Country: IT (occurrence: IT)
  Receive Date: 20230410
  Receipt Date: 20230410
  Transmission Date: 20230722
  Serious: Yes (Other)
  Sender: FDA-Public Use
  Company Number: None

PATIENT
  Age: 20 Year
  Sex: Female

DRUGS (5)
  1. XANAX [Suspect]
     Active Substance: ALPRAZOLAM
     Indication: Sedative therapy
     Dosage: 14 MILLIGRAM, 1 TOTAL
     Route: 048
     Dates: start: 20221014, end: 20221014
  2. MELATONIN [Suspect]
     Active Substance: MELATONIN
     Indication: Sedative therapy
     Dosage: 3 DOSAGE FORM, 1 TOTAL
     Route: 048
  3. MELATONIN [Suspect]
     Active Substance: MELATONIN
     Dosage: 3 DOSAGE FORM, 1 TOTAL
     Route: 048
     Dates: start: 20221014, end: 20221014
  4. FLUVOXAMINE [Concomitant]
     Active Substance: FLUVOXAMINE
     Dosage: 2 DOSAGE FORM, QD
     Route: 065
  5. DULOXETINE [Concomitant]
     Active Substance: DULOXETINE
     Dosage: 1 DOSAGE FORM, QD
     Route: 065

REACTIONS (2)
  - Psychomotor skills impaired [Recovering/Resolving]
  - Drug abuse [Recovered/Resolved]

NARRATIVE: CASE EVENT DATE: 20221014
